FAERS Safety Report 15627315 (Version 1)
Quarter: 2018Q4

REPORT INFORMATION
  Report Type: Report from Study
  Country: US (occurrence: US)
  Receive Date: 20181116
  Receipt Date: 20181116
  Transmission Date: 20190205
  Serious: No
  Sender: FDA-Public Use
  Company Number: PHEH2018US047443

PATIENT
  Sex: Male

DRUGS (1)
  1. ENTRESTO [Suspect]
     Active Substance: SACUBITRIL\VALSARTAN
     Indication: ATRIAL FIBRILLATION
     Route: 048

REACTIONS (7)
  - Product use in unapproved indication [Unknown]
  - Joint swelling [Unknown]
  - Weight increased [Unknown]
  - Flatulence [Unknown]
  - Eructation [Unknown]
  - Abdominal pain upper [Unknown]
  - Cough [Unknown]
